FAERS Safety Report 14946308 (Version 1)
Quarter: 2018Q2

REPORT INFORMATION
  Report Type: Spontaneous
  Country: US (occurrence: US)
  Receive Date: 20180529
  Receipt Date: 20180529
  Transmission Date: 20180711
  Serious: No
  Sender: FDA-Public Use
  Company Number: US-SA-2018SA144051

PATIENT
  Age: 66 Year
  Sex: Female

DRUGS (1)
  1. LANTUS SOLOSTAR [Suspect]
     Active Substance: INSULIN GLARGINE
     Dosage: 61 U, QD
     Dates: start: 2017

REACTIONS (5)
  - Pain [Not Recovered/Not Resolved]
  - Skin abrasion [Unknown]
  - Fall [Unknown]
  - Eye contusion [Unknown]
  - Limb injury [Recovering/Resolving]
